FAERS Safety Report 5045185-1 (Version None)
Quarter: 2006Q3

REPORT INFORMATION
  Report Type: 
  Country: None (occurrence: None)
  Receive Date: 20060707
  Receipt Date: 20060316
  Transmission Date: 20061208
  Serious: Yes (Other)
  Sender: FDA-Public Use
  Company Number: 20060304663

PATIENT
  Age: 56 Year
  Sex: Female
  Weight: 54.5 kg

DRUGS (3)
  1. IMITREX [Suspect]
     Indication: MIGRAINE
     Dosage: 100MG AS REQUIRED
     Route: 048
     Dates: start: 20060316, end: 20060316
  2. TOPAMAX [Suspect]
     Indication: MIGRAINE
     Dosage: 250MG PER DAY
     Route: 048
     Dates: start: 20030501
  3. PAROXETINE HCL [Concomitant]
     Route: 048

REACTIONS (2)
  - APHASIA [None]
  - DYSARTHRIA [None]
